FAERS Safety Report 25459012 (Version 1)
Quarter: 2025Q2

REPORT INFORMATION
  Report Type: Spontaneous
  Country: NL (occurrence: NL)
  Receive Date: 20250620
  Receipt Date: 20250620
  Transmission Date: 20250716
  Serious: Yes (Other)
  Sender: CHEPLAPHARM
  Company Number: NL-EUROCEPT-EC20250103

PATIENT
  Age: 67 Year
  Sex: Female

DRUGS (9)
  1. QUETIAPINE [Suspect]
     Active Substance: QUETIAPINE
     Indication: Depression
  2. SERTRALINE [Concomitant]
     Active Substance: SERTRALINE HYDROCHLORIDE
  3. DIAZEPAM [Concomitant]
     Active Substance: DIAZEPAM
  4. ESKETAMINE [Concomitant]
     Active Substance: ESKETAMINE
     Indication: Depression
     Dates: start: 2022
  5. LORAZEPAM [Concomitant]
     Active Substance: LORAZEPAM
  6. PROMETHAZINE [Concomitant]
     Active Substance: PROMETHAZINE HYDROCHLORIDE
  7. ETOMIDATE [Concomitant]
     Active Substance: ETOMIDATE
  8. SUCCINYLCHOLINE [Concomitant]
     Active Substance: SUCCINYLCHOLINE
  9. FLUMAZENIL [Concomitant]
     Active Substance: FLUMAZENIL

REACTIONS (3)
  - Drug ineffective [Unknown]
  - Tension [Unknown]
  - Suicidal behaviour [Unknown]
